FAERS Safety Report 9193787 (Version 1)
Quarter: 2013Q1

REPORT INFORMATION
  Report Type: Spontaneous
  Country: GB (occurrence: GB)
  Receive Date: 20130327
  Receipt Date: 20130327
  Transmission Date: 20140127
  Serious: Yes (Disabling)
  Sender: FDA-Public Use
  Company Number: GB-TEVA-393095ISR

PATIENT
  Age: 75 Year
  Sex: Male
  Weight: 105.7 kg

DRUGS (9)
  1. WARFARIN [Suspect]
     Indication: ATRIAL FIBRILLATION
     Dosage: 2 MILLIGRAM DAILY; STARTED ON 1MG TWO DOSES DAILY, THEN INCREASED TO 3MG ONCE DAILY ON 13.02.2013
     Route: 048
     Dates: start: 20130206, end: 20130213
  2. WARFARIN [Suspect]
     Indication: ATRIAL FIBRILLATION
     Dosage: 3 MILLIGRAM DAILY; STARTED ON 1MG TWO DOSES DAILY, THEN INCREASED TO 3MG ONCE DAILY ON 13.02.2013
     Route: 048
     Dates: start: 20130213, end: 20130214
  3. ALLOPURINOL [Concomitant]
     Dosage: 300 MILLIGRAM DAILY;
     Route: 048
  4. AMLODIPINE [Concomitant]
     Indication: HYPERTENSION
     Dosage: 10 MILLIGRAM DAILY;
     Route: 048
  5. ASPIRIN [Concomitant]
     Dosage: 75 MILLIGRAM DAILY;
     Route: 048
  6. ATORVASTATIN [Concomitant]
     Dosage: 10 MILLIGRAM DAILY;
     Route: 048
     Dates: start: 20120911
  7. SIMVASTATIN [Concomitant]
     Dates: end: 20120911
  8. DUTASTERIDE [Concomitant]
     Dosage: 500 MILLIGRAM DAILY;
     Route: 048
  9. QUININE [Concomitant]
     Dosage: TAKE ONE AT NIGHT AS NEEDED
     Route: 048

REACTIONS (5)
  - Dyspnoea [Not Recovered/Not Resolved]
  - Insomnia [Not Recovered/Not Resolved]
  - Condition aggravated [Not Recovered/Not Resolved]
  - Adverse reaction [Not Recovered/Not Resolved]
  - Adverse reaction [Not Recovered/Not Resolved]
